FAERS Safety Report 4984118-0 (Version None)
Quarter: 2006Q1

REPORT INFORMATION
  Report Type: 
  Country: None (occurrence: None)
  Receive Date: 20060303
  Receipt Date: 20060113
  Transmission Date: 20060701
  Serious: Yes (Other)
  Sender: FDA-Public Use
  Company Number: HQWYE386917JAN06

PATIENT
  Age: 66 Year
  Sex: Female
  Weight: 53.57 kg

DRUGS (5)
  1. ALAVERT D-12 (LORATADINE/PSEUDOEPHERINE SULFATE, TABLET, EXTENDED RELE [Suspect]
     Indication: HYPERSENSITIVITY
     Dosage: 1 TABLET X1 PER 1 DAY, ORAL
     Route: 048
     Dates: start: 20051201
  2. FLOVENT [Concomitant]
  3. ASPIRIN [Concomitant]
  4. ASACOL [Concomitant]
  5. SEREVENT [Concomitant]

REACTIONS (1)
  - INSOMNIA [None]
